FAERS Safety Report 12842757 (Version 4)
Quarter: 2016Q4

REPORT INFORMATION
  Report Type: Spontaneous
  Country: US (occurrence: US)
  Receive Date: 20161013
  Receipt Date: 20161223
  Transmission Date: 20170207
  Serious: No
  Sender: FDA-Public Use
  Company Number: US-PFIZER INC-2016477884

PATIENT
  Age: 53 Year
  Sex: Female

DRUGS (6)
  1. AROMASIN [Concomitant]
     Active Substance: EXEMESTANE
     Indication: BREAST CANCER
     Dosage: 25 MG, DAILY
     Route: 048
     Dates: start: 20140509, end: 20150612
  2. IBRANCE [Suspect]
     Active Substance: PALBOCICLIB
     Indication: BREAST CANCER
     Dosage: 125 MG, CYCLIC (DAY 1-21 AND 28 DAY)
     Route: 048
     Dates: start: 20140509, end: 20150612
  3. IBRANCE [Suspect]
     Active Substance: PALBOCICLIB
     Dosage: 125 MG, CYCLIC, (DAY 1-21 AND 28 DAY)
     Route: 048
     Dates: start: 20150512, end: 20160615
  4. IBRANCE [Suspect]
     Active Substance: PALBOCICLIB
     Dosage: 125 MG, CYCLIC, (DAY 1-21 EVERY 28 DAY)
     Route: 048
     Dates: start: 20150909, end: 20160811
  5. LETROZOLE. [Concomitant]
     Active Substance: LETROZOLE
     Indication: BREAST CANCER
     Dosage: 2.5 MG, DAILY
     Route: 048
     Dates: start: 20150906, end: 20160811
  6. FASLODEX [Concomitant]
     Active Substance: FULVESTRANT
     Indication: BREAST CANCER
     Dosage: 500 MG, CYCLIC, (Q 28 DAYS IM)
     Route: 030
     Dates: start: 20150512, end: 20160601

REACTIONS (1)
  - Neoplasm progression [Recovered/Resolved]

NARRATIVE: CASE EVENT DATE: 20160810
